FAERS Safety Report 4732433-8 (Version None)
Quarter: 2005Q3

REPORT INFORMATION
  Report Type: 
  Country: None (occurrence: None)
  Receive Date: 20050801
  Receipt Date: 20050726
  Transmission Date: 20060218
  Serious: Yes (Other)
  Sender: FDA-Public Use
  Company Number: USA-2005-0020840

PATIENT
  Age: 47 Year
  Sex: Female

DRUGS (12)
  1. PALLADONE [Suspect]
     Indication: PAIN
     Dosage: SEE IMAGE
     Route: 048
  2. REGLAN [Concomitant]
  3. XANAX [Concomitant]
  4. ZELNORM [Concomitant]
  5. DONNATAL ELIXIR (ATROPINE SULFATE, PHENOBARBITAL, HYOSCINE HYDROBROMID [Concomitant]
  6. SYNTHROID [Concomitant]
  7. PREMARIN [Concomitant]
  8. ACIFEX [Concomitant]
  9. SOMA [Concomitant]
  10. ALLEGRA [Concomitant]
  11. ALBUTEROL [Concomitant]
  12. HYDROCODONE [Concomitant]

REACTIONS (4)
  - CONFUSIONAL STATE [None]
  - DIZZINESS [None]
  - HYPERSOMNIA [None]
  - MEMORY IMPAIRMENT [None]
